FAERS Safety Report 7485567-1 (Version None)
Quarter: 2011Q2

REPORT INFORMATION
  Report Type: 
  Country: None (occurrence: None)
  Receive Date: 20110517
  Receipt Date: 20101228
  Transmission Date: 20111010
  Serious: Yes (Hospitalization)
  Sender: FDA-Public Use
  Company Number: US-BAYER-2010-008219

PATIENT
  Age: 54 Year
  Sex: Male

DRUGS (2)
  1. CIPRO [Suspect]
     Indication: LOCALISED INFECTION
     Dosage: UNK
     Dates: start: 20101201
  2. REBIF [Suspect]
     Dosage: 44 ?G, Q3WK
     Route: 058
     Dates: start: 20101006

REACTIONS (2)
  - LETHARGY [None]
  - FATIGUE [None]
